FAERS Safety Report 8893193 (Version 1)
Quarter: 2012Q4

REPORT INFORMATION
  Report Type: Spontaneous
  Country: US (occurrence: None)
  Receive Date: 20121101
  Receipt Date: 20121101
  Transmission Date: 20130627
  Serious: Yes (Other)
  Sender: FDA-Public Use
  Company Number: TPA2012A08550

PATIENT
  Age: 34 Year
  Sex: Male

DRUGS (2)
  1. EDARBI [Suspect]
     Dosage: 1 in 1 D,
     Route: 048
  2. UNKNOWN MEDICATIONS (ALL OTHER THERAPEUTIC PRODUCTS) [Concomitant]

REACTIONS (1)
  - Renal failure acute [None]
